FAERS Safety Report 5056498-1 (Version None)
Quarter: 2006Q3

REPORT INFORMATION
  Report Type: 
  Country: None (occurrence: None)
  Receive Date: 20060720
  Receipt Date: 20060713
  Transmission Date: 20061208
  Serious: Yes (Other)
  Sender: FDA-Public Use
  Company Number: ES-BRISTOL-MYERS SQUIBB COMPANY-13439096

PATIENT
  Age: 42 Year
  Sex: Female

DRUGS (4)
  1. EFAVIRENZ [Suspect]
     Dates: start: 20051001
  2. STAVUDINE [Suspect]
     Dates: start: 19970101
  3. LAMIVUDINE [Suspect]
     Dates: start: 19970101
  4. SAQUINAVIR [Suspect]
     Dates: start: 19970101

REACTIONS (1)
  - ORAL DISCOMFORT [None]
